FAERS Safety Report 5675080-6 (Version None)
Quarter: 2008Q1

REPORT INFORMATION
  Report Type: 
  Country: None (occurrence: None)
  Receive Date: 20080320
  Receipt Date: 20080313
  Transmission Date: 20080703
  Serious: Yes (Other)
  Sender: FDA-Public Use
  Company Number: FR-AVENTIS-200810993FR

PATIENT
  Age: 80 Year
  Sex: Female

DRUGS (12)
  1. LANTUS [Suspect]
     Indication: DIABETES MELLITUS
     Route: 058
     Dates: start: 20080101, end: 20080313
  2. DIAMICRON [Concomitant]
  3. LASILIX                            /00032601/ [Concomitant]
  4. TENORMIN [Concomitant]
  5. DIGITALINE NATIVELLE [Concomitant]
  6. PREVISCAN                          /00789001/ [Concomitant]
     Route: 048
  7. INEGY [Concomitant]
  8. IMOVANE [Concomitant]
  9. DISCOTRINE [Concomitant]
  10. COZAAR [Concomitant]
  11. OMEPRAZOLE [Concomitant]
  12. HUMALOG [Concomitant]

REACTIONS (2)
  - GENERALISED ERYTHEMA [None]
  - PHARYNGOLARYNGEAL DISCOMFORT [None]
